FAERS Safety Report 5451857-7 (Version None)
Quarter: 2007Q3

REPORT INFORMATION
  Report Type: 
  Country: None (occurrence: None)
  Receive Date: 20070912
  Receipt Date: 20070905
  Transmission Date: 20080115
  Serious: Yes (Disabling)
  Sender: FDA-Public Use
  Company Number: 2007AL003441

PATIENT
  Age: 71 Year
  Sex: Male

DRUGS (6)
  1. DIGOXIN [Suspect]
     Indication: DRUG USE FOR UNKNOWN INDICATION
     Dosage: 125 MG;QD;PO
     Route: 048
  2. ERYTHROMYCIN [Concomitant]
  3. BISOPROLOL [Concomitant]
  4. ENALAPRIL MALEATE [Concomitant]
  5. FUROSEMIDE [Concomitant]
  6. ASPIRIN [Concomitant]

REACTIONS (1)
  - ATRIAL FIBRILLATION [None]
